FAERS Safety Report 6971071-3 (Version None)
Quarter: 2010Q3

REPORT INFORMATION
  Report Type: 
  Country: None (occurrence: None)
  Receive Date: 20100908
  Receipt Date: 20100729
  Transmission Date: 20110219
  Serious: Yes (Death, Life-Threatening)
  Sender: FDA-Public Use
  Company Number: US-BAXTER-2010BH005213

PATIENT
  Age: 80 Year
  Sex: Male
  Weight: 107 kg

DRUGS (26)
  1. HEPARIN SODIUM INJECTION [Suspect]
     Indication: CATHETERISATION CARDIAC
     Route: 042
     Dates: start: 20070613, end: 20070613
  2. HEPARIN SODIUM INJECTION [Suspect]
     Indication: ANTICOAGULANT THERAPY
     Route: 042
     Dates: start: 20070613, end: 20070613
  3. HEPARIN SODIUM INJECTION [Suspect]
     Route: 042
     Dates: start: 20070613, end: 20070613
  4. HEPARIN SODIUM INJECTION [Suspect]
     Route: 042
     Dates: start: 20070613, end: 20070613
  5. HEPARIN SODIUM 1,000 UNITS AND SODIUM CHLORIDE 0.9% [Suspect]
     Indication: CATHETERISATION CARDIAC
     Route: 042
     Dates: start: 20070613, end: 20070613
  6. HYZAAR [Concomitant]
     Indication: PRODUCT USED FOR UNKNOWN INDICATION
     Route: 065
  7. WARFARIN [Concomitant]
     Indication: PRODUCT USED FOR UNKNOWN INDICATION
     Route: 065
  8. LASIX [Concomitant]
     Indication: PRODUCT USED FOR UNKNOWN INDICATION
     Route: 065
  9. POTASSIUM CHLORIDE [Concomitant]
     Indication: PRODUCT USED FOR UNKNOWN INDICATION
     Route: 048
  10. VASOTEC [Concomitant]
     Indication: PRODUCT USED FOR UNKNOWN INDICATION
     Route: 065
  11. DIOVAN HCT [Concomitant]
     Indication: PRODUCT USED FOR UNKNOWN INDICATION
     Route: 048
  12. SPIRIVA [Concomitant]
     Indication: PRODUCT USED FOR UNKNOWN INDICATION
     Route: 055
  13. IPRATROPIUM BROMIDE [Concomitant]
     Indication: PRODUCT USED FOR UNKNOWN INDICATION
     Route: 055
  14. ALBUTEROL [Concomitant]
     Indication: PRODUCT USED FOR UNKNOWN INDICATION
     Route: 055
  15. OXYGEN [Concomitant]
     Indication: PRODUCT USED FOR UNKNOWN INDICATION
     Route: 065
  16. AMOXICILLIN AND CLAVULANATE POTASSIUM [Concomitant]
     Indication: PRODUCT USED FOR UNKNOWN INDICATION
     Route: 065
  17. ATROPINE [Concomitant]
     Indication: BRADYCARDIA
     Route: 065
     Dates: start: 20070613, end: 20070613
  18. DOPAMINE HCL [Concomitant]
     Indication: BLOOD PRESSURE
     Route: 042
     Dates: start: 20070613, end: 20070613
  19. EPINEPHRINE [Concomitant]
     Indication: BLOOD PRESSURE
     Route: 042
     Dates: start: 20070613, end: 20070613
  20. EPINEPHRINE [Concomitant]
     Route: 042
     Dates: start: 20070613, end: 20070613
  21. LIDOCAINE [Concomitant]
     Indication: VENTRICULAR FIBRILLATION
     Route: 042
     Dates: start: 20070613, end: 20070613
  22. MAGNESIUM SULFATE [Concomitant]
     Indication: VENTRICULAR FIBRILLATION
     Route: 042
     Dates: start: 20070613, end: 20070613
  23. SODIUM BICARBONATE [Concomitant]
     Indication: ACIDOSIS
     Route: 042
     Dates: start: 20070613, end: 20070613
  24. LEVOPHED [Concomitant]
     Indication: HEART RATE
     Route: 042
     Dates: start: 20070613, end: 20070613
  25. FENTANYL CITRATE [Concomitant]
     Indication: SEDATION
     Route: 065
     Dates: start: 20070613, end: 20070613
  26. PROTAMINE SULFATE [Concomitant]
     Indication: COAGULATION FACTOR
     Route: 042
     Dates: start: 20070613, end: 20070613

REACTIONS (14)
  - ARTERIAL RUPTURE [None]
  - ARTERIOSCLEROSIS [None]
  - BLOOD PRESSURE DECREASED [None]
  - BRADYCARDIA [None]
  - CARDIO-RESPIRATORY ARREST [None]
  - CARDIOMEGALY [None]
  - HAEMOPTYSIS [None]
  - HAEMOTHORAX [None]
  - METABOLIC ACIDOSIS [None]
  - NEPHROSCLEROSIS [None]
  - PLEURAL ADHESION [None]
  - PULMONARY CONGESTION [None]
  - RESPIRATORY ACIDOSIS [None]
  - VENTRICULAR FIBRILLATION [None]
